FAERS Safety Report 4483791-3 (Version None)
Quarter: 2004Q4

REPORT INFORMATION
  Report Type: 
  Country: None (occurrence: None)
  Receive Date: 20041022
  Receipt Date: 20041022
  Transmission Date: 20050328
  Serious: Yes (Life-Threatening)
  Sender: FDA-Public Use
  Company Number: None

PATIENT
  Age: 67 Year
  Sex: Female
  Weight: 95.2554 kg

DRUGS (15)
  1. ZYVOX [Suspect]
     Indication: STAPHYLOCOCCAL INFECTION
     Dosage: 600 MG BID
  2. LEVOTHYROXINE SODIUM [Concomitant]
  3. GLIPIZIDE [Concomitant]
  4. PIOGLITAZONE HCL [Concomitant]
  5. AMLODIPINE [Concomitant]
  6. FUROSEMIDE [Concomitant]
  7. MULTIVIT [Concomitant]
  8. DETROL LA [Concomitant]
  9. FAMOTIDINE [Concomitant]
  10. SIMVASTATIN [Concomitant]
  11. AMITRIPTYLINE HCL [Concomitant]
  12. IRON [Concomitant]
  13. GLUCOSAMINE [Concomitant]
  14. EPOGEN [Concomitant]
  15. PAIN MEDS [Concomitant]

REACTIONS (2)
  - ELECTROCARDIOGRAM ST SEGMENT ABNORMAL [None]
  - MYOCARDIAL INFARCTION [None]
